FAERS Safety Report 9540817 (Version 5)
Quarter: 2013Q4

REPORT INFORMATION
  Report Type: Report from Study
  Country: KR (occurrence: KR)
  Receive Date: 20130920
  Receipt Date: 20131223
  Transmission Date: 20140711
  Serious: No
  Sender: FDA-Public Use
  Company Number: PHHY2013KR051537

PATIENT
  Age: 69 Year
  Sex: Male

DRUGS (14)
  1. AMN107 [Suspect]
     Indication: CHRONIC MYELOID LEUKAEMIA
     Dosage: 600 MG, PER DAY
     Route: 048
     Dates: start: 20120903
  2. LEGALON [Concomitant]
     Indication: BLOOD BILIRUBIN INCREASED
     Dosage: 140 MG, UNK
     Route: 048
     Dates: start: 20130416, end: 20130507
  3. VESICARE [Concomitant]
     Indication: PROPHYLAXIS
     Dosage: 10 MG, UNK
     Route: 048
     Dates: start: 20130108, end: 20130215
  4. VESICARE [Concomitant]
     Indication: POLLAKIURIA
  5. TOVIAZ [Concomitant]
     Indication: POLLAKIURIA
     Dosage: 4 MG, UNK
     Route: 048
     Dates: start: 20121107, end: 20121120
  6. TOVIAZ [Concomitant]
     Indication: PROPHYLAXIS
  7. MEDILAC DS [Concomitant]
     Indication: PROPHYLAXIS
     Dosage: 2 DF, UNK
     Route: 048
     Dates: start: 20121107, end: 20121120
  8. STILLEN [Concomitant]
     Indication: PROPHYLAXIS
     Dosage: 120 MG, UNK
     Route: 048
     Dates: start: 20121008, end: 20121021
  9. CRAVIT [Concomitant]
     Indication: INFECTION PROPHYLAXIS
     Dosage: 500 MG, UNK
     Route: 048
     Dates: start: 20121008, end: 20130426
  10. ALBIS [Concomitant]
     Indication: PROPHYLAXIS
     Dosage: 4 TAB, UNK
     Route: 048
     Dates: start: 20120919, end: 20121015
  11. BUP-4 [Concomitant]
     Indication: POLLAKIURIA
     Dosage: 20 MG, UNK
     Route: 048
     Dates: start: 20120903, end: 20121203
  12. BUP-4 [Concomitant]
     Indication: PROPHYLAXIS
  13. ZYLORIC [Concomitant]
     Indication: PROPHYLAXIS
     Dosage: 100 MG, UNK
     Route: 048
     Dates: start: 20120903, end: 20120913
  14. ACECLO [Concomitant]
     Indication: PROCEDURAL PAIN
     Dosage: 100 MG, UNK
     Route: 048
     Dates: start: 20120903, end: 20130426

REACTIONS (2)
  - Dry eye [Recovered/Resolved]
  - Herpes zoster [Recovered/Resolved]
